FAERS Safety Report 24195713 (Version 4)
Quarter: 2024Q4

REPORT INFORMATION
  Report Type: Report from Study
  Country: JP (occurrence: JP)
  Receive Date: 20240809
  Receipt Date: 20241112
  Transmission Date: 20250115
  Serious: Yes (Life-Threatening, Hospitalization, Other)
  Sender: ALEXION PHARMACEUTICALS
  Company Number: 2023A263332

PATIENT
  Age: 58 Year
  Weight: 54 kg

DRUGS (8)
  1. DURVALUMAB [Suspect]
     Active Substance: DURVALUMAB
     Indication: Hepatocellular carcinoma
     Dosage: 500 MILLIGRAM, UNK
  2. DURVALUMAB [Suspect]
     Active Substance: DURVALUMAB
     Dosage: 500 MILLIGRAM, UNK
  3. DURVALUMAB [Suspect]
     Active Substance: DURVALUMAB
     Dosage: 500 MILLIGRAM, UNK
  4. DURVALUMAB [Suspect]
     Active Substance: DURVALUMAB
     Dosage: 500 MILLIGRAM, UNK
  5. TREMELIMUMAB [Suspect]
     Active Substance: TREMELIMUMAB
     Indication: Hepatocellular carcinoma
     Dosage: 25 MILLIGRAM
  6. TREMELIMUMAB [Suspect]
     Active Substance: TREMELIMUMAB
     Dosage: 25 MILLIGRAM
  7. TREMELIMUMAB [Suspect]
     Active Substance: TREMELIMUMAB
     Dosage: 25 MILLIGRAM
  8. TREMELIMUMAB [Suspect]
     Active Substance: TREMELIMUMAB
     Dosage: 25 MILLIGRAM

REACTIONS (3)
  - Liver disorder [Recovering/Resolving]
  - Immune-mediated adrenal insufficiency [Recovering/Resolving]
  - Rash [Recovering/Resolving]
